FAERS Safety Report 4302711-5 (Version None)
Quarter: 2004Q1

REPORT INFORMATION
  Report Type: 
  Country: None (occurrence: None)
  Receive Date: 20040126
  Receipt Date: 20031014
  Transmission Date: 20041129
  Serious: No
  Sender: FDA-Public Use
  Company Number: USA031049863

PATIENT
  Age: 11 Year
  Sex: Male
  Weight: 31 kg

DRUGS (3)
  1. STRATTERA [Suspect]
     Dosage: 25 MG/DAY
     Dates: start: 20031002
  2. CONCERTA [Concomitant]
  3. METADATE (METHYLPHENIDATE) [Concomitant]

REACTIONS (6)
  - ABNORMAL BEHAVIOUR [None]
  - DIARRHOEA [None]
  - DIZZINESS [None]
  - DYSPEPSIA [None]
  - LETHARGY [None]
  - SOMNOLENCE [None]
